FAERS Safety Report 16058333 (Version 2)
Quarter: 2019Q1

REPORT INFORMATION
  Report Type: Spontaneous
  Country: ES (occurrence: ES)
  Receive Date: 20190311
  Receipt Date: 20190325
  Transmission Date: 20190418
  Serious: Yes (Hospitalization, Other)
  Sender: FDA-Public Use
  Company Number: ES-ELI_LILLY_AND_COMPANY-ES201902013194

PATIENT
  Age: 62 Year
  Sex: Male

DRUGS (9)
  1. HALOPERIDOL. [Suspect]
     Active Substance: HALOPERIDOL
     Indication: BIPOLAR DISORDER
  2. HALOPERIDOL. [Suspect]
     Active Substance: HALOPERIDOL
     Indication: MANIA
     Dosage: UNK UNK, UNKNOWN
     Route: 048
  3. LITHIUM CARBONATE. [Suspect]
     Active Substance: LITHIUM CARBONATE
     Dosage: 1000 MG, DAILY
     Route: 065
  4. OLANZAPINE. [Suspect]
     Active Substance: OLANZAPINE
     Indication: MANIA
     Dosage: UNK UNK, UNKNOWN
     Route: 048
  5. OLANZAPINE. [Suspect]
     Active Substance: OLANZAPINE
     Indication: BIPOLAR DISORDER
  6. CLOTIAPINE [Suspect]
     Active Substance: CLOTHIAPINE
     Indication: MANIA
     Dosage: UNK UNK, UNKNOWN
     Route: 048
  7. LITHIUM CARBONATE. [Suspect]
     Active Substance: LITHIUM CARBONATE
     Indication: BIPOLAR DISORDER
     Dosage: UNK, UNKNOWN
     Route: 065
  8. CLOTIAPINE [Suspect]
     Active Substance: CLOTHIAPINE
     Indication: BIPOLAR DISORDER
  9. LITHIUM CARBONATE. [Suspect]
     Active Substance: LITHIUM CARBONATE
     Dosage: 1200 MG, DAILY
     Route: 065

REACTIONS (14)
  - Dysstasia [Unknown]
  - Tremor [Unknown]
  - Toxicity to various agents [Not Recovered/Not Resolved]
  - Disorientation [Recovered/Resolved]
  - Nervous system disorder [Unknown]
  - Muscular weakness [Unknown]
  - Hyperreflexia [Unknown]
  - Depressed level of consciousness [Recovered/Resolved]
  - Gait disturbance [Unknown]
  - Drug level above therapeutic [Unknown]
  - Neurotoxicity [Unknown]
  - Dysarthria [Unknown]
  - Coordination abnormal [Unknown]
  - Ataxia [Unknown]
